FAERS Safety Report 5238440-3 (Version None)
Quarter: 2007Q1

REPORT INFORMATION
  Report Type: 
  Country: None (occurrence: None)
  Receive Date: 20070215
  Receipt Date: 20070206
  Transmission Date: 20070707
  Serious: Yes (Life-Threatening, Other)
  Sender: FDA-Public Use
  Company Number: NLWYE538506FEB07

PATIENT
  Sex: Male
  Weight: 120 kg

DRUGS (5)
  1. EFFEXOR XR [Suspect]
     Indication: DEPRESSION
     Dosage: 150 MG EVERY
     Dates: start: 20020304, end: 20060629
  2. NIFEDIPINE [Concomitant]
     Dosage: 30 MG EVERY
  3. METOPROLOL TARTRATE [Concomitant]
     Dosage: 100 MG EVERY
  4. SIMVASTATIN [Concomitant]
     Dosage: 20 MG EVERY
  5. LOSEC MUPS [Concomitant]
     Dosage: 20 MG EVERY

REACTIONS (3)
  - CHRONIC OBSTRUCTIVE PULMONARY DISEASE [None]
  - COUGH [None]
  - PRODUCTIVE COUGH [None]
